FAERS Safety Report 21019280 (Version 1)
Quarter: 2022Q2

REPORT INFORMATION
  Report Type: Spontaneous
  Country: US (occurrence: US)
  Receive Date: 20220628
  Receipt Date: 20220628
  Transmission Date: 20220721
  Serious: No
  Sender: FDA-Public Use
  Company Number: US-SA-SAC20220623000917

PATIENT
  Sex: Female

DRUGS (25)
  1. DUPIXENT [Suspect]
     Active Substance: DUPILUMAB
     Indication: Product used for unknown indication
     Dosage: 300 MG, QOW
     Route: 058
     Dates: end: 2022
  2. UPTRAVI [Concomitant]
     Active Substance: SELEXIPAG
     Dosage: UNK
  3. ZINC [Concomitant]
     Active Substance: ZINC
  4. CARVEDILOL [Concomitant]
     Active Substance: CARVEDILOL
  5. LORATADINE D [Concomitant]
     Active Substance: LORATADINE\PSEUDOEPHEDRINE SULFATE
  6. OPSUMIT [Concomitant]
     Active Substance: MACITENTAN
  7. LEVOTHYROXINE SODIUM [Concomitant]
     Active Substance: LEVOTHYROXINE SODIUM
  8. SILDENAFIL CITRATE [Concomitant]
     Active Substance: SILDENAFIL CITRATE
  9. VITAMINS NOS [Concomitant]
     Active Substance: VITAMINS
  10. ALLOPURINOL [Concomitant]
     Active Substance: ALLOPURINOL
  11. ALBUTEROL SULFATE [Concomitant]
     Active Substance: ALBUTEROL SULFATE
  12. PANTOPRAZOLE [Concomitant]
     Active Substance: PANTOPRAZOLE
  13. ROPINIROLE HYDROCHLORIDE [Concomitant]
     Active Substance: ROPINIROLE HYDROCHLORIDE
  14. SEREVENT DISKUS [Concomitant]
     Active Substance: SALMETEROL XINAFOATE
  15. BUDESONIDE [Concomitant]
     Active Substance: BUDESONIDE
  16. FUROSEMIDE [Concomitant]
     Active Substance: FUROSEMIDE
  17. CYANOCOBALAMIN [Concomitant]
     Active Substance: CYANOCOBALAMIN
  18. LYSINE [Concomitant]
     Active Substance: LYSINE
  19. VITAMIN E [Concomitant]
     Active Substance: .ALPHA.-TOCOPHEROL
  20. FLUTICASONE PROPIONATE [Concomitant]
     Active Substance: FLUTICASONE PROPIONATE
  21. MONTELUKAST SODIUM [Concomitant]
     Active Substance: MONTELUKAST SODIUM
  22. LOSARTAN POTASSIUM [Concomitant]
     Active Substance: LOSARTAN POTASSIUM
  23. THEOPHYLLINE [Concomitant]
     Active Substance: THEOPHYLLINE
  24. VITAMIN C [Concomitant]
     Active Substance: ASCORBIC ACID
  25. PFIZER-BIONTECH COVID-19 VACCINE [Concomitant]
     Active Substance: TOZINAMERAN

REACTIONS (7)
  - Dyspnoea [Unknown]
  - Dysstasia [Unknown]
  - Asthenia [Unknown]
  - Fluid retention [Unknown]
  - Myalgia [Unknown]
  - Pain in extremity [Recovering/Resolving]
  - Nasopharyngitis [Recovering/Resolving]
